FAERS Safety Report 7221501-7 (Version None)
Quarter: 2011Q1

REPORT INFORMATION
  Report Type: 
  Country: None (occurrence: None)
  Receive Date: 20110112
  Receipt Date: 20110104
  Transmission Date: 20110831
  Serious: Yes (Other)
  Sender: FDA-Public Use
  Company Number: PHHY2011DE01247

PATIENT
  Sex: Male
  Weight: 95 kg

DRUGS (1)
  1. RASILEZ [Suspect]
     Indication: HYPERTENSION
     Dosage: 150 MG, BID
     Route: 048

REACTIONS (2)
  - BLOOD PRESSURE INCREASED [None]
  - RENAL FAILURE ACUTE [None]
